FAERS Safety Report 6074211-6 (Version None)
Quarter: 2009Q1

REPORT INFORMATION
  Report Type: 
  Country: None (occurrence: None)
  Receive Date: 20090211
  Receipt Date: 20090130
  Transmission Date: 20090719
  Serious: Yes (Life-Threatening, Hospitalization)
  Sender: FDA-Public Use
  Company Number: JP-SANOFI-SYNTHELABO-A01200815770

PATIENT
  Sex: Male
  Weight: 66 kg

DRUGS (10)
  1. LEUCON [Concomitant]
     Dosage: UNK
     Dates: start: 20071112, end: 20080603
  2. ORGOTEIN [Concomitant]
  3. OXYCODONE HCL [Concomitant]
  4. LOXONIN [Concomitant]
  5. IRINOTECAN HCL [Concomitant]
     Dates: start: 20080526, end: 20080526
  6. ISOVORIN [Suspect]
     Indication: RECTAL CANCER RECURRENT
     Route: 041
     Dates: start: 20081125, end: 20081125
  7. FLUOROURACIL [Suspect]
     Indication: RECTAL CANCER RECURRENT
     Route: 042
     Dates: start: 20081125, end: 20081125
  8. ELPLAT [Suspect]
     Indication: RECTAL CANCER RECURRENT
     Route: 041
     Dates: start: 20081125, end: 20081125
  9. AVASTIN [Suspect]
     Indication: RECTAL CANCER RECURRENT
     Route: 041
     Dates: start: 20081125, end: 20081125
  10. MECOBALAMINE [Concomitant]
     Dates: start: 20071112

REACTIONS (14)
  - ANOREXIA [None]
  - DISEASE PROGRESSION [None]
  - DISSEMINATED INTRAVASCULAR COAGULATION [None]
  - GASTROINTESTINAL HAEMORRHAGE [None]
  - GINGIVAL BLEEDING [None]
  - HYPERTENSION [None]
  - LIVER DISORDER [None]
  - MALAISE [None]
  - MELANAEMIA [None]
  - NASOPHARYNGITIS [None]
  - PLATELET COUNT DECREASED [None]
  - PYREXIA [None]
  - RENAL IMPAIRMENT [None]
  - WHITE BLOOD CELL COUNT DECREASED [None]
